FAERS Safety Report 21166110 (Version 1)
Quarter: 2022Q3

REPORT INFORMATION
  Report Type: Report from Study
  Country: GB (occurrence: GB)
  Receive Date: 20220803
  Receipt Date: 20220803
  Transmission Date: 20221026
  Serious: Yes (Other)
  Sender: FDA-Public Use
  Company Number: GB-SAMSUNG BIOEPIS-SB-2022-18465

PATIENT
  Age: 44 Year
  Sex: Female

DRUGS (2)
  1. METHOTREXATE SODIUM [Suspect]
     Active Substance: METHOTREXATE SODIUM
     Indication: Product used for unknown indication
     Dosage: UNKNOWN
     Route: 065
  2. ETANERCEPT [Suspect]
     Active Substance: ETANERCEPT
     Indication: Rheumatoid arthritis
     Route: 058

REACTIONS (6)
  - Liver function test increased [Recovered/Resolved]
  - Injection site bruising [Unknown]
  - Injection site pain [Unknown]
  - Rheumatoid arthritis [Unknown]
  - Sleep disorder [Unknown]
  - Drug ineffective [Unknown]
